FAERS Safety Report 14502933 (Version 1)
Quarter: 2018Q1

REPORT INFORMATION
  Report Type: Spontaneous
  Country: ES (occurrence: ES)
  Receive Date: 20180208
  Receipt Date: 20180208
  Transmission Date: 20180509
  Serious: Yes (Other)
  Sender: FDA-Public Use
  Company Number: ES-BAYER-2018-019436

PATIENT
  Age: 77 Year
  Sex: Male

DRUGS (4)
  1. ZOVIRAX GLAXOSMITHKLINE [ACICLOVIR] [Concomitant]
     Dosage: UNK
  2. ELTROMBOPAG [Suspect]
     Active Substance: ELTROMBOPAG
  3. WARFARIN [Suspect]
     Active Substance: WARFARIN
     Indication: IMMUNE THROMBOCYTOPENIC PURPURA
     Dosage: UNK
  4. ACETYLSALICYLIC ACID({=100 MG) [Suspect]
     Active Substance: ASPIRIN
     Indication: IMMUNE THROMBOCYTOPENIC PURPURA
     Dosage: UNK

REACTIONS (2)
  - Platelet count decreased [None]
  - Atrial thrombosis [None]
